FAERS Safety Report 6179540-3 (Version None)
Quarter: 2009Q2

REPORT INFORMATION
  Report Type: 
  Country: None (occurrence: None)
  Receive Date: 20090505
  Receipt Date: 20090430
  Transmission Date: 20091009
  Serious: Yes (Life-Threatening)
  Sender: FDA-Public Use
  Company Number: US-BRISTOL-MYERS SQUIBB COMPANY-14500433

PATIENT
  Age: 55 Year
  Sex: Male

DRUGS (2)
  1. ABILIFY [Suspect]
     Indication: BIPOLAR DISORDER
     Dosage: 1 DOSAGE FORM = 2.5 - 15MG
     Route: 048
     Dates: start: 20050901
  2. MIRTAZAPINE [Concomitant]

REACTIONS (3)
  - CORONARY ARTERY OCCLUSION [None]
  - LIPIDS INCREASED [None]
  - WEIGHT INCREASED [None]
